FAERS Safety Report 18215595 (Version 4)
Quarter: 2021Q1

REPORT INFORMATION
  Report Type: Spontaneous
  Country: JP (occurrence: JP)
  Receive Date: 20200831
  Receipt Date: 20210322
  Transmission Date: 20210419
  Serious: Yes (Hospitalization, Other)
  Sender: FDA-Public Use
  Company Number: JP-TAKEDA-2020TJP017873

PATIENT
  Age: 19 Year
  Sex: Male
  Weight: 57.8 kg

DRUGS (9)
  1. SESDEN [Concomitant]
     Active Substance: TIMEPIDIUM BROMIDE
     Indication: ABDOMINAL PAIN
  2. CEREKINON [Concomitant]
     Active Substance: TRIMEBUTINE
     Indication: DIARRHOEA
     Dosage: 100 MILLIGRAM, TID
     Route: 048
     Dates: start: 20200424
  3. BIOFERMIN [LACTOMIN] [Concomitant]
     Active Substance: DIETARY SUPPLEMENT\PROBIOTICS
     Indication: ABDOMINAL PAIN
  4. ENTYVIO [Suspect]
     Active Substance: VEDOLIZUMAB
     Indication: COLITIS ULCERATIVE
     Dosage: 300 MILLIGRAM, Q8WEEKS
     Route: 041
     Dates: start: 20200610
  5. BIOFERMIN [LACTOMIN] [Concomitant]
     Active Substance: DIETARY SUPPLEMENT\PROBIOTICS
     Indication: DIARRHOEA
     Dosage: 1 DOSAGE FORM, TID
     Route: 048
     Dates: start: 20200425
  6. ADSORBIN [Concomitant]
     Active Substance: ALUMINUM SILICATE
     Indication: DIARRHOEA
     Dosage: 1 GRAM, TID
     Route: 048
     Dates: start: 20200425
  7. ADSORBIN [Concomitant]
     Active Substance: ALUMINUM SILICATE
     Indication: ABDOMINAL PAIN
  8. SESDEN [Concomitant]
     Active Substance: TIMEPIDIUM BROMIDE
     Indication: DIARRHOEA
     Dosage: 30 MILLIGRAM
     Route: 048
     Dates: start: 20200722
  9. CEREKINON [Concomitant]
     Active Substance: TRIMEBUTINE
     Indication: ABDOMINAL PAIN

REACTIONS (2)
  - Pyrexia [Recovered/Resolved]
  - Bacteraemia [Recovered/Resolved]

NARRATIVE: CASE EVENT DATE: 20200815
